FAERS Safety Report 20495948 (Version 1)
Quarter: 2022Q1

REPORT INFORMATION
  Report Type: Spontaneous
  Country: US (occurrence: US)
  Receive Date: 20220221
  Receipt Date: 20220221
  Transmission Date: 20220423
  Serious: Yes (Hospitalization, Other)
  Sender: FDA-Public Use
  Company Number: US-GLAXOSMITHKLINE-US2022027498

PATIENT
  Age: 88 Year
  Sex: Female

DRUGS (17)
  1. INCRUSE ELLIPTA [Suspect]
     Active Substance: UMECLIDINIUM BROMIDE
     Indication: Chronic obstructive pulmonary disease
     Dosage: 62.5 MCG 1 PUFF(S), QD
  2. ALBUTEROL SULFATE [Concomitant]
     Active Substance: ALBUTEROL SULFATE
     Indication: Wheezing
     Dosage: 2 PUFF(S) EVERY 4 HOURS AS NEEDED
  3. ALBUTEROL SULFATE [Concomitant]
     Active Substance: ALBUTEROL SULFATE
     Indication: Dyspnoea
     Dosage: 1 AMPULE EVERY 4 TO 6 HOURS AS NEEDED
  4. ALBUTEROL SULFATE [Concomitant]
     Active Substance: ALBUTEROL SULFATE
     Indication: Chronic obstructive pulmonary disease
  5. ALPRAZOLAM [Concomitant]
     Active Substance: ALPRAZOLAM
     Indication: Sleep disorder
     Dosage: 0.25 MG EVERY 8 HOURS AS NEEDED
  6. ALPRAZOLAM [Concomitant]
     Active Substance: ALPRAZOLAM
     Indication: Anxiety
  7. ASPIRIN [Concomitant]
     Active Substance: ASPIRIN
     Indication: Thrombosis
     Dosage: 81 MG, Z , BY MOUTH, DAILY
     Route: 048
     Dates: end: 20220112
  8. ELIQUIS [Concomitant]
     Active Substance: APIXABAN
     Indication: Thrombosis
     Dosage: UNK
     Dates: start: 20220112
  9. CALCIUM CITRATE [Concomitant]
     Active Substance: CALCIUM CITRATE
     Indication: Bone density abnormal
     Dosage: 600 MG 1 DF, Z, (DAILY)
  10. LASIX [Concomitant]
     Active Substance: FUROSEMIDE
     Indication: Fluid retention
     Dosage: 20 MG, BID
  11. LASIX [Concomitant]
     Active Substance: FUROSEMIDE
     Indication: Heart rate normal
  12. TOPROL XL [Concomitant]
     Active Substance: METOPROLOL SUCCINATE
     Indication: Palpitations
     Dosage: 25 MG, Z , ONCE DAILY
  13. TOPROL XL [Concomitant]
     Active Substance: METOPROLOL SUCCINATE
     Indication: Atrial fibrillation
  14. SINGULAIR [Concomitant]
     Active Substance: MONTELUKAST SODIUM
     Indication: Hypersensitivity
     Dosage: 10 MG, Z , AT NIGHT
  15. ZOCOR [Concomitant]
     Active Substance: SIMVASTATIN
     Indication: Blood cholesterol increased
     Dosage: 40 MG, Z , AT NIGHT
  16. RISPERIDONE [Concomitant]
     Active Substance: RISPERIDONE
     Indication: Insomnia
     Dosage: 0.25 MG
  17. SYNTHROID [Concomitant]
     Active Substance: LEVOTHYROXINE SODIUM
     Indication: Hypothyroidism
     Dosage: 0.25 MG, Z , DAILY

REACTIONS (7)
  - COVID-19 pneumonia [Recovering/Resolving]
  - Pneumonia bacterial [Recovering/Resolving]
  - Pulmonary embolism [Recovering/Resolving]
  - Fall [Recovered/Resolved with Sequelae]
  - Dyspnoea [Unknown]
  - Cough [Unknown]
  - Aphasia [Unknown]

NARRATIVE: CASE EVENT DATE: 20220103
